FAERS Safety Report 14201975 (Version 2)
Quarter: 2017Q4

REPORT INFORMATION
  Report Type: Spontaneous
  Country: BR (occurrence: BR)
  Receive Date: 20171117
  Receipt Date: 20171204
  Transmission Date: 20180321
  Serious: Yes (Other)
  Sender: FDA-Public Use
  Company Number: BR-ELI_LILLY_AND_COMPANY-BR201711003005

PATIENT
  Sex: Male

DRUGS (1)
  1. HUMALOG [Suspect]
     Active Substance: INSULIN LISPRO
     Indication: PRODUCT USED FOR UNKNOWN INDICATION
     Dosage: UNK UNK, UNKNOWN
     Route: 065

REACTIONS (8)
  - Visual impairment [Unknown]
  - Feeling cold [Unknown]
  - Product storage error [Unknown]
  - Blood glucose increased [Unknown]
  - Drug ineffective [Unknown]
  - Feeling abnormal [Unknown]
  - Vision blurred [Unknown]
  - Cyanosis [Unknown]
